FAERS Safety Report 18581707 (Version 1)
Quarter: 2020Q4

REPORT INFORMATION
  Report Type: Spontaneous
  Country: US (occurrence: US)
  Receive Date: 20201203
  Receipt Date: 20201203
  Transmission Date: 20210114
  Serious: Yes (Hospitalization)
  Sender: FDA-Public Use
  Company Number: None

PATIENT
  Age: 21 Year
  Sex: Female

DRUGS (9)
  1. VANCOMYCIN [Concomitant]
     Active Substance: VANCOMYCIN
  2. SMZ/TMP [Concomitant]
     Active Substance: SULFAMETHOXAZOLE\TRIMETHOPRIM
  3. LEVOFLOXACIN. [Concomitant]
     Active Substance: LEVOFLOXACIN
  4. GRANIX [Suspect]
     Active Substance: TBO-FILGRASTIM
     Indication: NEOPLASM MALIGNANT
     Route: 058
     Dates: start: 20201117
  5. CLINDAMYCIN. [Concomitant]
     Active Substance: CLINDAMYCIN
  6. TRI-SPRINTEC [Concomitant]
     Active Substance: ETHINYL ESTRADIOL\NORGESTIMATE
  7. NORETHINDRON [Concomitant]
  8. OXYCODONE [Concomitant]
     Active Substance: OXYCODONE
  9. XARELTO [Concomitant]
     Active Substance: RIVAROXABAN

REACTIONS (1)
  - Large intestine infection [None]

NARRATIVE: CASE EVENT DATE: 20201118
